FAERS Safety Report 10626218 (Version 2)
Quarter: 2014Q4

REPORT INFORMATION
  Report Type: Spontaneous
  Country: DE (occurrence: DE)
  Receive Date: 20141204
  Receipt Date: 20141217
  Transmission Date: 20150529
  Serious: Yes (Hospitalization)
  Sender: FDA-Public Use
  Company Number: DE-ABBVIE-14P-062-1315764-00

PATIENT
  Sex: Male
  Weight: 6.1 kg

DRUGS (1)
  1. KREON FOR KINDER [Suspect]
     Active Substance: PANCRELIPASE
     Indication: CYSTIC FIBROSIS
     Dosage: 2500 UNITS PER G/FAT; FREQUENCY: 5 - 6 X PER DAY
     Route: 065
     Dates: start: 2014

REACTIONS (6)
  - Steatorrhoea [Not Recovered/Not Resolved]
  - Cough [Not Recovered/Not Resolved]
  - Medication residue present [Unknown]
  - Gastrooesophageal reflux disease [Not Recovered/Not Resolved]
  - Weight abnormal [Not Recovered/Not Resolved]
  - Vomiting [Not Recovered/Not Resolved]

NARRATIVE: CASE EVENT DATE: 2014
